FAERS Safety Report 8033891-6 (Version None)
Quarter: 2012Q1

REPORT INFORMATION
  Report Type: 
  Country: None (occurrence: None)
  Receive Date: 20120110
  Receipt Date: 20111228
  Transmission Date: 20120608
  Serious: Yes (Hospitalization, Other)
  Sender: FDA-Public Use
  Company Number: AU-MYLANLABS-2011S1026376

PATIENT
  Sex: Male

DRUGS (1)
  1. ENDEP [Suspect]
     Indication: PRODUCT USED FOR UNKNOWN INDICATION
     Dates: start: 19910101

REACTIONS (2)
  - RED BLOOD CELL COUNT DECREASED [None]
  - WHITE BLOOD CELL COUNT DECREASED [None]
